FAERS Safety Report 5688702-0 (Version None)
Quarter: 2008Q1

REPORT INFORMATION
  Report Type: 
  Country: None (occurrence: None)
  Receive Date: 20080331
  Receipt Date: 20080313
  Transmission Date: 20080703
  Serious: Yes (Hospitalization)
  Sender: FDA-Public Use
  Company Number: PT-MERCK-0803PRT00006

PATIENT
  Age: 61 Year
  Sex: Female

DRUGS (2)
  1. FOSAMAX PLUS D [Suspect]
     Indication: OSTEOPOROSIS
     Route: 048
     Dates: start: 20070101, end: 20080101
  2. FOSAMAX [Suspect]
     Route: 048
     Dates: start: 20020101, end: 20070101

REACTIONS (1)
  - RETINAL DETACHMENT [None]
